FAERS Safety Report 8952877 (Version 2)
Quarter: 2012Q4

REPORT INFORMATION
  Report Type: 
  Country: JP (occurrence: JP)
  Receive Date: 20121203
  Receipt Date: 20121231
  Transmission Date: 20130627
  Serious: Yes (Death)
  Sender: FDA-Public Use
  Company Number: CHPA2012JP022731

PATIENT
  Sex: Female

DRUGS (3)
  1. LAMISIL [Suspect]
     Indication: DECUBITUS ULCER
     Dosage: UNK, UNK
     Route: 061
     Dates: end: 201208
  2. ZINC [Concomitant]
     Indication: DECUBITUS ULCER
     Dosage: UNK, UNK
     Route: 061
  3. GEBEN [Concomitant]
     Indication: DECUBITUS ULCER
     Dosage: UNK, UNK
     Route: 061
     Dates: end: 201204

REACTIONS (5)
  - Lung neoplasm malignant [Fatal]
  - Concomitant disease aggravated [Fatal]
  - Decubitus ulcer [Not Recovered/Not Resolved]
  - Condition aggravated [Not Recovered/Not Resolved]
  - Off label use [Unknown]
